FAERS Safety Report 23586973 (Version 1)
Quarter: 2024Q1

REPORT INFORMATION
  Report Type: Spontaneous
  Country: CN (occurrence: None)
  Receive Date: 20240301
  Receipt Date: 20240301
  Transmission Date: 20240410
  Serious: Yes (Other)
  Sender: FDA-Public Use
  Company Number: 2024A048782

PATIENT
  Age: 66 Year
  Sex: Male
  Weight: 70 kg

DRUGS (1)
  1. OSIMERTINIB MESYLATE [Suspect]
     Active Substance: OSIMERTINIB MESYLATE
     Indication: Symptomatic treatment
     Route: 048
     Dates: start: 20210519, end: 20240120

REACTIONS (5)
  - Pulmonary embolism [Unknown]
  - Malignant neoplasm progression [Unknown]
  - Thrombosis [Unknown]
  - Hypercoagulation [Unknown]
  - COVID-19 [Unknown]

NARRATIVE: CASE EVENT DATE: 20240124
